FAERS Safety Report 5625930-4 (Version None)
Quarter: 2008Q1

REPORT INFORMATION
  Report Type: 
  Country: None (occurrence: None)
  Receive Date: 20080214
  Receipt Date: 20080205
  Transmission Date: 20080703
  Serious: Yes (Hospitalization)
  Sender: FDA-Public Use
  Company Number: US-BAYER-200812841GPV

PATIENT
  Age: 14 Year
  Sex: Male

DRUGS (2)
  1. ASPIRIN [Suspect]
     Indication: THROMBOSIS PROPHYLAXIS
     Dosage: AS USED: 81 MG
  2. IBUPROFEN [Suspect]
     Indication: PYREXIA
     Dosage: TOTAL DAILY DOSE: 1200 MG

REACTIONS (3)
  - DISORIENTATION [None]
  - TUBULOINTERSTITIAL NEPHRITIS [None]
  - VOMITING [None]
